FAERS Safety Report 5404463-4 (Version None)
Quarter: 2007Q3

REPORT INFORMATION
  Report Type: 
  Country: None (occurrence: None)
  Receive Date: 20070802
  Receipt Date: 20070723
  Transmission Date: 20080115
  Serious: Yes (Other)
  Sender: FDA-Public Use
  Company Number: US-PFIZER INC-2007061835

PATIENT
  Sex: Female
  Weight: 68.181 kg

DRUGS (2)
  1. CHANTIX [Suspect]
     Indication: SMOKING CESSATION THERAPY
  2. COZAAR [Concomitant]
     Indication: HYPERTENSION

REACTIONS (7)
  - FALL [None]
  - HEAD INJURY [None]
  - HYPOKINESIA [None]
  - SLEEP DISORDER [None]
  - VERTIGO [None]
  - VERTIGO POSITIONAL [None]
  - WEIGHT INCREASED [None]
